FAERS Safety Report 6644530-0 (Version None)
Quarter: 2010Q1

REPORT INFORMATION
  Report Type: 
  Country: None (occurrence: None)
  Receive Date: 20100319
  Receipt Date: 20100319
  Transmission Date: 20100710
  Serious: Yes (Disabling)
  Sender: FDA-Public Use
  Company Number: None

PATIENT
  Age: 51 Year
  Sex: Female

DRUGS (13)
  1. CHANTIX [Suspect]
     Indication: SMOKING CESSATION THERAPY
     Dates: start: 20070101, end: 20070131
  2. TRAMADOL HCL [Concomitant]
  3. DICLOFENAC [Concomitant]
  4. PRILOSEC [Concomitant]
  5. COQ10 [Concomitant]
  6. PREGNENOLONE [Concomitant]
  7. DHEA [Concomitant]
  8. BIEST CREAM [Concomitant]
  9. PROGESTERONE [Concomitant]
  10. VITAMIN D3 [Concomitant]
  11. CURCUMIA [Concomitant]
  12. RESVERITROL [Concomitant]
  13. MELATONIN [Concomitant]

REACTIONS (2)
  - FIBROMYALGIA [None]
  - TENDON PAIN [None]
